FAERS Safety Report 11879895 (Version 2)
Quarter: 2016Q1

REPORT INFORMATION
  Report Type: Other
  Country: MX (occurrence: MX)
  Receive Date: 20151230
  Receipt Date: 20160111
  Transmission Date: 20160526
  Serious: Yes (Death, Hospitalization, Other)
  Sender: FDA-Public Use
  Company Number: MX-SHIRE-MX201516772

PATIENT
  Age: 12 Year
  Sex: Male
  Weight: 25.5 kg

DRUGS (6)
  1. CAPTOPRIL. [Concomitant]
     Active Substance: CAPTOPRIL
     Indication: HYPERTROPHIC CARDIOMYOPATHY
     Dosage: UNK, UNKNOWN
     Route: 065
  2. ELAPRASE [Suspect]
     Active Substance: IDURSULFASE
     Indication: MUCOPOLYSACCHARIDOSIS II
     Dosage: 12.5 MG, 1X/WEEK
     Route: 041
     Dates: start: 20131127
  3. SALINE                             /00075401/ [Concomitant]
     Active Substance: SODIUM CHLORIDE
     Indication: MEDICATION DILUTION
     Dosage: 100 ML OF SALINE SOLUTION TO RUN OVER 1 HOUR, 1X/WEEK
     Route: 041
     Dates: start: 20131127
  4. VALPROIC ACID. [Concomitant]
     Active Substance: VALPROIC ACID
     Indication: GENERALISED TONIC-CLONIC SEIZURE
     Dosage: UNK, UNKNOWN
     Route: 065
  5. CAPTOPRIL. [Concomitant]
     Active Substance: CAPTOPRIL
     Indication: AORTIC VALVE INCOMPETENCE
  6. DIPHENHYDRAMINE. [Concomitant]
     Active Substance: DIPHENHYDRAMINE
     Indication: PREMEDICATION
     Dosage: 8 MG, UNKNOWN
     Route: 042

REACTIONS (3)
  - Bronchospasm [Recovering/Resolving]
  - Dyspnoea [Fatal]
  - Varicella [Recovering/Resolving]

NARRATIVE: CASE EVENT DATE: 20151215
